FAERS Safety Report 9583223 (Version 1)
Quarter: 2013Q4

REPORT INFORMATION
  Report Type: Spontaneous
  Country: US (occurrence: US)
  Receive Date: 20131002
  Receipt Date: 20131002
  Transmission Date: 20140711
  Serious: No
  Sender: FDA-Public Use
  Company Number: US-AMGEN-USASP2013045228

PATIENT
  Age: 39 Year
  Sex: Female
  Weight: 90.7 kg

DRUGS (15)
  1. ENBREL [Suspect]
     Indication: PRODUCT USED FOR UNKNOWN INDICATION
     Dosage: 50 MG, QWK
     Route: 058
  2. METHOTREXATE [Concomitant]
     Dosage: 2.5 MG, UNK
     Route: 048
  3. ALLEGRA [Concomitant]
     Dosage: 60 MG, UNK
     Route: 048
  4. FINASTERIDE [Concomitant]
     Dosage: 5 MG, UNK
     Route: 048
  5. PRILOSEC                           /00661201/ [Concomitant]
     Dosage: 10 MG, UNK
     Route: 048
  6. SPIRONOLACTON [Concomitant]
     Dosage: 25 MG, UNK
     Route: 048
  7. ORACEA [Concomitant]
     Dosage: 40 MG, UNK
     Route: 048
  8. VITAMIN D                          /00107901/ [Concomitant]
     Dosage: 2000 UNIT, UNK
     Route: 048
  9. CALCIUM [Concomitant]
     Dosage: 500 UNK, UNK
     Route: 048
  10. BIOTIN [Concomitant]
     Dosage: 5000 UNK, UNK
     Route: 048
  11. MULTIVITAMINS, PLAIN [Concomitant]
     Dosage: UNK
     Route: 048
  12. YAZ [Concomitant]
     Dosage: 3 - 0.02 MG, UNK
     Route: 048
  13. FERROUS SULFATE [Concomitant]
     Dosage: UNK
     Route: 048
  14. FOLIC ACID [Concomitant]
     Dosage: UNK
     Route: 048
  15. LEVOXYL [Concomitant]
     Dosage: 88 MUG, UNK
     Route: 048

REACTIONS (3)
  - Erythema [Unknown]
  - Flushing [Unknown]
  - Hypersensitivity [Unknown]
